FAERS Safety Report 6152564-8 (Version None)
Quarter: 2009Q2

REPORT INFORMATION
  Report Type: 
  Country: None (occurrence: None)
  Receive Date: 20090413
  Receipt Date: 20090406
  Transmission Date: 20091009
  Serious: Yes (Hospitalization)
  Sender: FDA-Public Use
  Company Number: JP-BRISTOL-MYERS SQUIBB COMPANY-14581243

PATIENT
  Age: 60 Year
  Sex: Female

DRUGS (3)
  1. BARACLUDE [Suspect]
     Route: 048
     Dates: start: 20060927
  2. LAMIVUDINE [Concomitant]
  3. ADEFOVIR DIPIVOXIL KIT [Concomitant]

REACTIONS (1)
  - THERAPEUTIC RESPONSE DECREASED [None]
